FAERS Safety Report 10348303 (Version 2)
Quarter: 2014Q3

REPORT INFORMATION
  Report Type: Spontaneous
  Country: US (occurrence: US)
  Receive Date: 20140729
  Receipt Date: 20140926
  Transmission Date: 20150326
  Serious: Yes (Hospitalization, Other)
  Sender: FDA-Public Use
  Company Number: US-BAYER-2014-110690

PATIENT
  Age: 24 Year
  Sex: Female
  Weight: 77.98 kg

DRUGS (2)
  1. MIRENA [Suspect]
     Active Substance: LEVONORGESTREL
     Indication: CONTRACEPTION
     Dosage: 20 MCG/24HR, CONT
     Route: 015
     Dates: start: 20080208, end: 20100805
  2. ADDERALL [Concomitant]
     Active Substance: AMPHETAMINE ASPARTATE\AMPHETAMINE SULFATE\DEXTROAMPHETAMINE SACCHARATE\DEXTROAMPHETAMINE SULFATE
     Dosage: UNK
     Dates: start: 2010

REACTIONS (10)
  - Injury [None]
  - Pelvic pain [None]
  - Anxiety [None]
  - Scar [None]
  - Genital haemorrhage [None]
  - Drug ineffective [None]
  - Device issue [None]
  - Emotional distress [None]
  - Pregnancy with contraceptive device [None]
  - Uterine perforation [None]

NARRATIVE: CASE EVENT DATE: 200912
